FAERS Safety Report 7408745-6 (Version None)
Quarter: 2011Q2

REPORT INFORMATION
  Report Type: 
  Country: None (occurrence: None)
  Receive Date: 20110412
  Receipt Date: 20110405
  Transmission Date: 20111010
  Serious: Yes (Life-Threatening, Hospitalization, Other)
  Sender: FDA-Public Use
  Company Number: FR-BRISTOL-MYERS SQUIBB COMPANY-15655996

PATIENT
  Age: 80 Year
  Sex: Male

DRUGS (7)
  1. CORDARONE [Concomitant]
  2. KAYEXALATE [Concomitant]
  3. APROVEL FILM-COATED TABS 150 MG [Suspect]
     Route: 048
     Dates: end: 20110306
  4. LERCAN [Concomitant]
  5. KARDEGIC [Concomitant]
  6. LASIX [Suspect]
     Route: 048
     Dates: end: 20110306
  7. TARDYFERON [Concomitant]

REACTIONS (5)
  - RENAL FAILURE ACUTE [None]
  - PNEUMONIA [None]
  - DEHYDRATION [None]
  - FALL [None]
  - RESPIRATORY ACIDOSIS [None]
